FAERS Safety Report 7235505-1 (Version None)
Quarter: 2011Q1

REPORT INFORMATION
  Report Type: 
  Country: None (occurrence: None)
  Receive Date: 20110120
  Receipt Date: 20110106
  Transmission Date: 20110831
  Serious: Yes (Other)
  Sender: FDA-Public Use
  Company Number: PHHY2010JP81965

PATIENT
  Sex: Female
  Weight: 33 kg

DRUGS (3)
  1. FEMARA [Suspect]
     Indication: BREAST CANCER
     Dosage: 2.5 MG, QD
     Route: 048
     Dates: start: 20071126
  2. ARICEPT [Suspect]
     Dosage: 5 MG, QD
     Route: 048
     Dates: start: 20081101
  3. AMLODIPINE [Suspect]
     Dosage: 5 MG, QD
     Route: 048
     Dates: start: 20091101

REACTIONS (3)
  - INTERSTITIAL LUNG DISEASE [None]
  - COUGH [None]
  - IDIOPATHIC PULMONARY FIBROSIS [None]
